FAERS Safety Report 5672522-7 (Version None)
Quarter: 2008Q1

REPORT INFORMATION
  Report Type: 
  Country: None (occurrence: None)
  Receive Date: 20080319
  Receipt Date: 20080307
  Transmission Date: 20080703
  Serious: No
  Sender: FDA-Public Use
  Company Number: US-BAYER-200816760NA

PATIENT
  Age: 33 Year
  Sex: Female

DRUGS (1)
  1. MIRENA [Suspect]
     Indication: MENORRHAGIA
     Route: 015
     Dates: start: 20080206, end: 20080305

REACTIONS (4)
  - ALOPECIA [None]
  - ARTHRALGIA [None]
  - PAIN IN EXTREMITY [None]
  - WEIGHT INCREASED [None]
